FAERS Safety Report 8061617-9 (Version None)
Quarter: 2012Q1

REPORT INFORMATION
  Report Type: 
  Country: None (occurrence: None)
  Receive Date: 20120123
  Receipt Date: 20120113
  Transmission Date: 20120608
  Serious: Yes (Hospitalization)
  Sender: FDA-Public Use
  Company Number: US-AMGEN-USASP2012002736

PATIENT
  Age: 48 Year
  Sex: Female

DRUGS (1)
  1. ENBREL [Suspect]
     Indication: RHEUMATOID ARTHRITIS
     Dosage: 50 MG, QWK
     Dates: start: 20051101

REACTIONS (4)
  - RHEUMATOID ARTHRITIS [None]
  - ARTERIOSCLEROSIS [None]
  - HYPOAESTHESIA [None]
  - PERIPHERAL COLDNESS [None]
